FAERS Safety Report 9329172 (Version 1)
Quarter: 2013Q2

REPORT INFORMATION
  Report Type: Spontaneous
  Country: US (occurrence: US)
  Receive Date: 20130604
  Receipt Date: 20130604
  Transmission Date: 20140414
  Serious: Yes (Other)
  Sender: FDA-Public Use
  Company Number: US-TEVA-409649USA

PATIENT
  Age: 34 Year
  Sex: Female
  Weight: 99.88 kg

DRUGS (1)
  1. PLAN B ONE-STEP [Suspect]
     Indication: POST COITAL CONTRACEPTION
     Dosage: 1.5 MILLIGRAM DAILY;
     Route: 048

REACTIONS (4)
  - Pregnancy after post coital contraception [Unknown]
  - Breast tenderness [Not Recovered/Not Resolved]
  - Pelvic pain [Not Recovered/Not Resolved]
  - Drug ineffective [Unknown]
